APPROVED DRUG PRODUCT: RIVFLOZA
Active Ingredient: NEDOSIRAN SODIUM
Strength: EQ 80MG BASE/0.5ML (EQ 160MG BASE/ML)
Dosage Form/Route: SOLUTION;INJECTION
Application: N215842 | Product #001
Applicant: NOVO NORDISK INC
Approved: Sep 29, 2023 | RLD: Yes | RS: Yes | Type: RX

PATENTS:
Patent 11661604 | Expires: Oct 12, 2038
Patent 11359203 | Expires: Oct 9, 2035
Patent 11286488 | Expires: Oct 12, 2038
Patent 10738311 | Expires: Oct 9, 2035
Patent 11053502 | Expires: Oct 29, 2035
Patent 10351854 | Expires: Oct 9, 2035

EXCLUSIVITY:
Code: NCE | Date: Sep 29, 2028
Code: NPP | Date: Mar 27, 2028
Code: ODE-443 | Date: Sep 29, 2030